FAERS Safety Report 6844460-5 (Version None)
Quarter: 2010Q3

REPORT INFORMATION
  Report Type: 
  Country: None (occurrence: None)
  Receive Date: 20100713
  Receipt Date: 20100707
  Transmission Date: 20110219
  Serious: No
  Sender: FDA-Public Use
  Company Number: 2125337-2010-00001

PATIENT

DRUGS (1)
  1. ISAGEL (60% ETHANOL) [Suspect]
     Indication: ANTI-INFECTIVE THERAPY
     Dosage: TOPICAL
     Route: 061

REACTIONS (2)
  - DRUG HYPERSENSITIVITY [None]
  - PRODUCT QUALITY ISSUE [None]
